FAERS Safety Report 23964130 (Version 1)
Quarter: 2024Q2

REPORT INFORMATION
  Report Type: Spontaneous
  Country: US (occurrence: None)
  Receive Date: 20240611
  Receipt Date: 20240611
  Transmission Date: 20240716
  Serious: Yes (Disabling)
  Sender: FDA-Public Use
  Company Number: None

PATIENT
  Age: 34 Year
  Sex: Female
  Weight: 74.25 kg

DRUGS (7)
  1. LEVETIRACETAM [Suspect]
     Active Substance: LEVETIRACETAM
     Indication: Partial seizures
     Dates: start: 20240204, end: 20240408
  2. PROPRANOLOL [Concomitant]
  3. ADDERALL [Concomitant]
     Active Substance: AMPHETAMINE ASPARTATE\AMPHETAMINE SULFATE\DEXTROAMPHETAMINE SACCHARATE\DEXTROAMPHETAMINE SULFATE
  4. MAGNESIUM GLYCINATE [Concomitant]
     Active Substance: MAGNESIUM GLYCINATE
  5. ASPIRIN [Concomitant]
     Active Substance: ASPIRIN
  6. VITAMIN D NOS [Concomitant]
     Active Substance: CHOLECALCIFEROL\ERGOCALCIFEROL
  7. VITAMIN B 100 COMPLEX [Concomitant]

REACTIONS (13)
  - Fatigue [None]
  - Cognitive disorder [None]
  - Aphasia [None]
  - Dysarthria [None]
  - Dyspnoea exertional [None]
  - Chest pain [None]
  - Palpitations [None]
  - Hepatic enzyme increased [None]
  - Neuropathy peripheral [None]
  - Visual impairment [None]
  - Eye movement disorder [None]
  - Mood altered [None]
  - Adjustment disorder [None]

NARRATIVE: CASE EVENT DATE: 20240307
